FAERS Safety Report 9870230 (Version 1)
Quarter: 2014Q1

REPORT INFORMATION
  Report Type: Spontaneous
  Country: US (occurrence: US)
  Receive Date: 20140205
  Receipt Date: 20140205
  Transmission Date: 20141002
  Serious: Yes (Death, Other)
  Sender: FDA-Public Use
  Company Number: US-PFIZER INC-2014030117

PATIENT
  Age: 72 Year
  Sex: Male
  Weight: 81.63 kg

DRUGS (4)
  1. ZOLOFT [Suspect]
     Indication: DEPRESSION
     Dosage: 50 MG, 1X/DAY
     Dates: start: 1998
  2. ZOLOFT [Suspect]
     Dosage: 150 MG, 1X/DAY
  3. SERTRALINE HCL [Suspect]
     Indication: DEPRESSION
     Dosage: UNK
  4. HEPARIN [Concomitant]
     Dosage: UNK
     Dates: start: 20120401

REACTIONS (4)
  - Overdose [Fatal]
  - Diabetes mellitus [Not Recovered/Not Resolved]
  - Malaise [Not Recovered/Not Resolved]
  - Laboratory test abnormal [Not Recovered/Not Resolved]
